FAERS Safety Report 9162986 (Version 2)
Quarter: 2013Q2

REPORT INFORMATION
  Report Type: Spontaneous
  Country: DE (occurrence: FR)
  Receive Date: 20130314
  Receipt Date: 20130627
  Transmission Date: 20140414
  Serious: Yes (Other)
  Sender: FDA-Public Use
  Company Number: FR-FRI-1000043375

PATIENT
  Age: 79 Year
  Sex: Female

DRUGS (12)
  1. MEMANTINE [Suspect]
     Dosage: 20 MG
     Route: 048
     Dates: end: 20120525
  2. CYMBALTA [Suspect]
     Dosage: 1 DF
     Route: 048
     Dates: end: 20120525
  3. CERIS [Suspect]
     Dosage: 1 DF
     Route: 048
     Dates: end: 20120525
  4. IMOVANE [Suspect]
     Dosage: 1 DF
     Route: 048
     Dates: end: 20120525
  5. LYRICA [Suspect]
     Dosage: 2 DF
     Route: 048
  6. SKENAN [Suspect]
     Dosage: 2 DF
     Route: 048
  7. NOOTROPYL [Suspect]
     Dosage: 2 DF
     Route: 048
     Dates: end: 20120525
  8. SPECIAFOLDINE [Concomitant]
     Route: 048
     Dates: end: 20120525
  9. LEVOTHYROX [Concomitant]
     Route: 048
  10. FUROSEMIDE [Concomitant]
     Dosage: 20 MG
     Route: 048
  11. SPIRIVA [Concomitant]
     Dosage: 1 DF
     Route: 055
     Dates: end: 20120525
  12. BECLOMETASONE DIPROPIONATE [Concomitant]
     Dates: end: 20120525

REACTIONS (1)
  - Disturbance in attention [Recovered/Resolved]
